FAERS Safety Report 4294374-2 (Version None)
Quarter: 2004Q1

REPORT INFORMATION
  Report Type: 
  Country: None (occurrence: None)
  Receive Date: 20040211
  Receipt Date: 20040126
  Transmission Date: 20041129
  Serious: Yes (Life-Threatening, Hospitalization, Other)
  Sender: FDA-Public Use
  Company Number: 2003124531

PATIENT
  Age: 54 Year
  Sex: Female
  Weight: 97.5234 kg

DRUGS (5)
  1. NORVASC [Suspect]
     Indication: HYPERTENSION
     Dosage: 10 MG, (DAILY) ORAL
     Route: 048
     Dates: end: 20031201
  2. VALDECOXIB [Suspect]
     Indication: SYSTEMIC LUPUS ERYTHEMATOSUS
     Dosage: (DAILY), ORAL
     Route: 048
     Dates: end: 20030101
  3. ACETYLSALICYLIC ACID SRT [Concomitant]
  4. QUETIAPINE FUMARATE (QUETIAPINE FUMARATE) [Concomitant]
  5. MODAFINIL [Concomitant]

REACTIONS (4)
  - ARTHRALGIA [None]
  - BLOOD DISORDER [None]
  - BRONCHITIS [None]
  - MYOCARDIAL INFARCTION [None]
